FAERS Safety Report 5128864-7 (Version None)
Quarter: 2006Q4

REPORT INFORMATION
  Report Type: 
  Country: None (occurrence: None)
  Receive Date: 20061017
  Receipt Date: 20060302
  Transmission Date: 20070319
  Serious: No
  Sender: FDA-Public Use
  Company Number: US-GLAXOSMITHKLINE-A0595906A

PATIENT
  Sex: Female

DRUGS (2)
  1. CEFTIN [Suspect]
     Indication: DRUG USE FOR UNKNOWN INDICATION
     Route: 048
  2. ZANTAC [Suspect]
     Indication: GASTRITIS
     Dosage: 150MG TWICE PER DAY
     Route: 048
     Dates: start: 20050801

REACTIONS (2)
  - ALOPECIA [None]
  - GASTRITIS [None]
